FAERS Safety Report 16025096 (Version 1)
Quarter: 2019Q1

REPORT INFORMATION
  Report Type: Spontaneous
  Country: US (occurrence: US)
  Receive Date: 20190301
  Receipt Date: 20190301
  Transmission Date: 20190418
  Serious: No
  Sender: FDA-Public Use
  Company Number: US-SA-2019SA056380

PATIENT
  Sex: Male

DRUGS (9)
  1. MULTIVITAMIN [VITAMINS NOS] [Concomitant]
  2. HYDROCORTISONE. [Concomitant]
     Active Substance: HYDROCORTISONE
     Dosage: 2.5%
  3. ACETONIDA DE TRIANCINOLONA [Concomitant]
     Dosage: 0.1%
  4. FLAXSEED OIL [LINUM USITATISSIMUM OIL] [Concomitant]
  5. AZITHROMYCIN ANHYDROUS. [Concomitant]
     Active Substance: AZITHROMYCIN ANHYDROUS
     Dosage: 250MG
  6. TRIAMCINOLONE [Concomitant]
     Active Substance: TRIAMCINOLONE
  7. DUPIXENT [Suspect]
     Active Substance: DUPILUMAB
     Indication: DERMATITIS ATOPIC
     Dosage: 600 MG, 1X
     Route: 058
     Dates: start: 201901
  8. FISH OIL [Concomitant]
     Active Substance: FISH OIL
     Dosage: 340-100
  9. VITAMIN D3 [Concomitant]
     Active Substance: CHOLECALCIFEROL

REACTIONS (5)
  - Eye discharge [Unknown]
  - Dry eye [Unknown]
  - Ocular hyperaemia [Unknown]
  - Eye irritation [Unknown]
  - Therapeutic response decreased [Unknown]
